FAERS Safety Report 12984173 (Version 3)
Quarter: 2016Q4

REPORT INFORMATION
  Report Type: Spontaneous
  Country: FR (occurrence: FR)
  Receive Date: 20161129
  Receipt Date: 20161230
  Transmission Date: 20170207
  Serious: Yes (Hospitalization)
  Sender: FDA-Public Use
  Company Number: FR-JNJFOC-20161124604

PATIENT
  Age: 61 Year
  Sex: Male

DRUGS (11)
  1. STRIBILD [Suspect]
     Active Substance: COBICISTAT\ELVITEGRAVIR\EMTRICITABINE\TENOFOVIR DISOPROXIL FUMARATE
     Indication: HIV INFECTION
     Dosage: 150/150/245 MG
     Route: 065
     Dates: start: 20160911, end: 20161020
  2. FLUCONAZOLE. [Concomitant]
     Active Substance: FLUCONAZOLE
     Indication: ORAL CANDIDIASIS
     Route: 065
     Dates: start: 20160916, end: 20161009
  3. CAELYX [Suspect]
     Active Substance: DOXORUBICIN HYDROCHLORIDE
     Indication: KAPOSI^S SARCOMA
     Route: 042
     Dates: start: 20160922, end: 20161021
  4. FLUCONAZOLE. [Concomitant]
     Active Substance: FLUCONAZOLE
     Indication: ORAL CANDIDIASIS
     Route: 065
  5. CYMEVAN [Concomitant]
     Active Substance: GANCICLOVIR
     Indication: CYTOMEGALOVIRUS INFECTION
     Route: 065
     Dates: start: 20160924, end: 20160927
  6. LEVOFLOXACIN. [Suspect]
     Active Substance: LEVOFLOXACIN
     Indication: BACTERIAL SEPSIS
     Route: 042
     Dates: start: 20161007, end: 20161017
  7. PENTACARINAT [Suspect]
     Active Substance: PENTAMIDINE ISETHIONATE
     Indication: PNEUMOCYSTIS JIROVECII INFECTION
     Route: 042
     Dates: start: 20161001, end: 20161018
  8. WELLVONE [Concomitant]
     Active Substance: ATOVAQUONE
     Route: 065
     Dates: start: 20160921, end: 20160930
  9. FLUCONAZOLE. [Concomitant]
     Active Substance: FLUCONAZOLE
     Indication: ORAL CANDIDIASIS
     Route: 065
     Dates: start: 20161009, end: 20161014
  10. ROVALCYTE [Concomitant]
     Active Substance: VALGANCICLOVIR HYDROCHLORIDE
     Indication: CYTOMEGALOVIRUS INFECTION
     Route: 065
     Dates: start: 20161007, end: 20161013
  11. CANCIDAS [Concomitant]
     Active Substance: CASPOFUNGIN ACETATE
     Indication: ORAL CANDIDIASIS
     Route: 065
     Dates: start: 20161009, end: 20161014

REACTIONS (2)
  - Renal tubular disorder [Recovering/Resolving]
  - Acute kidney injury [Recovered/Resolved]

NARRATIVE: CASE EVENT DATE: 20161018
